FAERS Safety Report 9735333 (Version 1)
Quarter: 2013Q4

REPORT INFORMATION
  Report Type: Spontaneous
  Country: IT (occurrence: IT)
  Receive Date: 20131206
  Receipt Date: 20131206
  Transmission Date: 20140711
  Serious: Yes (Other)
  Sender: FDA-Public Use
  Company Number: IT-SA-2013SA124083

PATIENT
  Age: 89 Year
  Sex: Female

DRUGS (6)
  1. LASIX [Suspect]
     Indication: PRODUCT USED FOR UNKNOWN INDICATION
     Route: 048
     Dates: start: 20080101, end: 20131027
  2. OMEPRAZOLE [Concomitant]
     Route: 048
  3. CARVEDILOL [Concomitant]
     Route: 048
  4. SINTROM [Concomitant]
     Route: 048
  5. ENAPREN [Concomitant]
  6. KANRENOL [Concomitant]
     Route: 048

REACTIONS (2)
  - Loss of consciousness [Recovering/Resolving]
  - Syncope [Recovering/Resolving]
